FAERS Safety Report 13127588 (Version 2)
Quarter: 2017Q2

REPORT INFORMATION
  Report Type: Spontaneous
  Country: US (occurrence: US)
  Receive Date: 20170118
  Receipt Date: 20170421
  Transmission Date: 20170830
  Serious: Yes (Death, Hospitalization)
  Sender: FDA-Public Use
  Company Number: US-JNJFOC-20170114634

PATIENT
  Age: 75 Year
  Sex: Male

DRUGS (1)
  1. XARELTO [Suspect]
     Active Substance: RIVAROXABAN
     Indication: DEEP VEIN THROMBOSIS
     Route: 048
     Dates: start: 20140913, end: 20150112

REACTIONS (4)
  - Hypovolaemic shock [Fatal]
  - Haematuria [Unknown]
  - Thrombocytopenia [Fatal]
  - Pneumatosis [Fatal]

NARRATIVE: CASE EVENT DATE: 20150112
